FAERS Safety Report 9523405 (Version 2)
Quarter: 2013Q4

REPORT INFORMATION
  Report Type: Spontaneous
  Country: JP (occurrence: JP)
  Receive Date: 20130913
  Receipt Date: 20131104
  Transmission Date: 20140711
  Serious: No
  Sender: FDA-Public Use
  Company Number: JP-SUCAMPO PHARMA AMERICAS, INC-SPI201300635

PATIENT
  Age: 76 Year
  Sex: Male

DRUGS (4)
  1. AMITIZA [Suspect]
     Indication: CONSTIPATION
     Dosage: 24 MCG, BID
     Route: 048
     Dates: start: 20130807, end: 20130809
  2. NEODOPASTON [Concomitant]
     Indication: PARKINSON^S DISEASE
     Dosage: 100 MG
     Route: 048
     Dates: start: 20130425
  3. MAGLAX [Concomitant]
     Indication: CONSTIPATION
     Dosage: 500 MG
     Route: 048
     Dates: start: 20130523
  4. MIRAPEX [Concomitant]
     Indication: PARKINSON^S DISEASE
     Dosage: 0.75 MG, QD
     Route: 048
     Dates: start: 20131017

REACTIONS (1)
  - Chest discomfort [Recovering/Resolving]
